FAERS Safety Report 24608768 (Version 2)
Quarter: 2024Q4

REPORT INFORMATION
  Report Type: Spontaneous
  Country: US (occurrence: US)
  Receive Date: 20241112
  Receipt Date: 20241230
  Transmission Date: 20250115
  Serious: Yes (Hospitalization, Other)
  Sender: BRISTOL-MYERS SQUIBB COMPANY
  Company Number: US-BRISTOL-MYERS SQUIBB COMPANY-2024-175207

PATIENT
  Age: 69 Year
  Sex: Male
  Weight: 87.1 kg

DRUGS (19)
  1. ELIQUIS [Suspect]
     Active Substance: APIXABAN
     Indication: Portal vein thrombosis
  2. ELIQUIS [Suspect]
     Active Substance: APIXABAN
  3. NIVOLUMAB [Concomitant]
     Active Substance: NIVOLUMAB
     Indication: Malignant melanoma
     Dosage: TOTAL DOSE ADMINISTERED THIS COURSE: 95.1 MG
     Dates: start: 20161130, end: 20180117
  4. IPILIMUMAB [Concomitant]
     Active Substance: IPILIMUMAB
     Indication: Malignant melanoma
     Dosage: TOTAL DOSE ADMINISTERED THIS COURSE: 285.3 MG
     Dates: start: 20161130, end: 20161220
  5. DABRAFENIB MESYLATE [Concomitant]
     Active Substance: DABRAFENIB MESYLATE
     Indication: Malignant melanoma
     Dosage: TOTAL DOSE ADMINISTERED THIS COURSE: 10650 MG
     Route: 048
     Dates: start: 20180808, end: 20240909
  6. TRAMETINIB DIMETHYL SULFOXIDE [Concomitant]
     Active Substance: TRAMETINIB DIMETHYL SULFOXIDE
     Indication: Malignant melanoma
     Dosage: TOTAL DOSE ADMINISTERED THIS COURSE: 37 MG
     Route: 048
     Dates: start: 20180808, end: 20240909
  7. VITAMINS [Concomitant]
     Active Substance: VITAMINS
     Indication: Product used for unknown indication
     Dates: start: 20170223
  8. METOPROLOL [Concomitant]
     Active Substance: METOPROLOL
     Indication: Product used for unknown indication
     Dates: start: 20240206
  9. AMLODIPINE [Concomitant]
     Active Substance: AMLODIPINE BESYLATE
     Indication: Product used for unknown indication
     Dates: start: 20220720
  10. METFORMIN [Concomitant]
     Active Substance: METFORMIN HYDROCHLORIDE
     Indication: Diabetes mellitus
     Dates: start: 20240719
  11. LANTUS [Concomitant]
     Active Substance: INSULIN GLARGINE
     Indication: Diabetes mellitus
     Dates: start: 20220804
  12. SPIRONOLACTONE [Concomitant]
     Active Substance: SPIRONOLACTONE
     Indication: Product used for unknown indication
     Dates: start: 20240916
  13. ATORVASTATIN [Concomitant]
     Active Substance: ATORVASTATIN
     Indication: Prophylaxis
     Dates: start: 20220806
  14. POTASSIUM CHLORIDE [Concomitant]
     Active Substance: POTASSIUM CHLORIDE
     Indication: Prophylaxis
     Dates: start: 20230101
  15. MESALAMINE [Concomitant]
     Active Substance: MESALAMINE
     Indication: Diverticulum intestinal
     Dates: start: 20240616, end: 20240913
  16. REPAGLINIDE [Concomitant]
     Active Substance: DULOXETINE HYDROCHLORIDE\REPAGLINIDE\TICAGRELOR
     Indication: Diabetes mellitus
     Dates: start: 20230301
  17. LISINOPRIL [Concomitant]
     Active Substance: LISINOPRIL
     Indication: Product used for unknown indication
     Dates: start: 20230607
  18. ONDANSETRON [Concomitant]
     Active Substance: ONDANSETRON
     Indication: Product used for unknown indication
     Dates: start: 20230718
  19. IRON [Concomitant]
     Active Substance: IRON
     Indication: Iron deficiency anaemia
     Dates: start: 20230223

REACTIONS (2)
  - Off label use [Unknown]
  - Lower gastrointestinal haemorrhage [Recovered/Resolved]

NARRATIVE: CASE EVENT DATE: 20240909
